FAERS Safety Report 6826013-8 (Version None)
Quarter: 2010Q3

REPORT INFORMATION
  Report Type: 
  Country: None (occurrence: None)
  Receive Date: 20100709
  Receipt Date: 20100625
  Transmission Date: 20110219
  Serious: Yes (Life-Threatening, Hospitalization, Other)
  Sender: FDA-Public Use
  Company Number: GB-RANBAXY-2010RR-34990

PATIENT
  Age: 57 Year
  Sex: Male
  Weight: 80 kg

DRUGS (8)
  1. MIDAZOLAM HCL [Suspect]
     Dosage: UNK
     Dates: start: 20100517, end: 20100517
  2. ONDANSETRON SOLUTION FOR INJECTION [Suspect]
     Indication: ANALGESIC THERAPY
     Dosage: 8 MG, UNK
     Route: 042
     Dates: start: 20100517, end: 20100517
  3. FENTANYL [Suspect]
     Indication: ANALGESIC THERAPY
     Dosage: 100 MG, UNK
     Route: 042
     Dates: start: 20100517, end: 20100517
  4. DYLOJECT [Suspect]
     Indication: ANALGESIC THERAPY
     Dosage: 75 MG, UNK
     Route: 042
     Dates: start: 20100517, end: 20100517
  5. PROPOFOL [Suspect]
     Indication: ANALGESIC THERAPY
     Dosage: 180 MG, UNK
     Route: 042
     Dates: start: 20100517, end: 20100517
  6. AMLODIPINE [Concomitant]
     Indication: HYPERTENSION
     Dosage: 5 MG, UNK
     Route: 048
  7. VALSARTAN [Concomitant]
     Indication: HYPERTENSION
     Dosage: 80 MG, UNK
     Route: 048
  8. SEVOFLURANE [Concomitant]
     Indication: ANAESTHESIA
     Dosage: UNK
     Route: 055
     Dates: start: 20100517

REACTIONS (1)
  - ANAPHYLACTIC REACTION [None]
